FAERS Safety Report 5079833-7 (Version None)
Quarter: 2006Q3

REPORT INFORMATION
  Report Type: 
  Country: None (occurrence: None)
  Receive Date: 20060720
  Receipt Date: 20050526
  Transmission Date: 20061208
  Serious: Yes (Hospitalization, Other)
  Sender: FDA-Public Use
  Company Number: 2005080952

PATIENT
  Age: 72 Year
  Sex: Female
  Weight: 84.369 kg

DRUGS (5)
  1. CELEBREX [Suspect]
     Indication: ARTHROPATHY
     Dosage: ORAL
     Route: 048
     Dates: start: 20021001, end: 20021001
  2. ACCUPRIL [Suspect]
     Indication: HYPERTENSION
     Dates: start: 20021001, end: 20021001
  3. FOSAMAX [Concomitant]
  4. NORVASC [Concomitant]
  5. PLAVIX [Concomitant]

REACTIONS (4)
  - DRUG INTERACTION [None]
  - GASTRIC DISORDER [None]
  - RENAL FAILURE [None]
  - RETCHING [None]
